FAERS Safety Report 4541795-6 (Version None)
Quarter: 2004Q4

REPORT INFORMATION
  Report Type: 
  Country: None (occurrence: None)
  Receive Date: 20041230
  Receipt Date: 20031030
  Transmission Date: 20050328
  Serious: Yes (Hospitalization)
  Sender: FDA-Public Use
  Company Number: 200321147GDDC

PATIENT
  Age: 72 Year
  Sex: Female

DRUGS (11)
  1. GLYBURIDE [Suspect]
     Indication: DIABETES MELLITUS
     Dosage: DOSE: UNK
     Route: 048
  2. LASIX [Suspect]
     Indication: HYPERTENSION
     Route: 048
  3. CIPROBAY [Suspect]
     Indication: INFECTION
     Route: 048
     Dates: start: 20010309, end: 20010323
  4. CODIPRONT [Suspect]
     Indication: CARCINOMA
     Dosage: DOSE: 1 DOSE FORM
     Route: 048
  5. CODIPRONT [Suspect]
     Indication: DYSPNOEA
     Dosage: DOSE: 1 DOSE FORM
     Route: 048
  6. SOTALOL HCL [Concomitant]
  7. ACC [Concomitant]
     Dosage: DOSE: UNK
  8. PRES [Concomitant]
     Dosage: DOSE: UNK
  9. TAVANIC [Concomitant]
     Dosage: DOSE: UNK
     Dates: start: 20010306, end: 20010309
  10. TAVEGYL [Concomitant]
     Dosage: DOSE: UNK
     Dates: start: 20010324
  11. AMPICILLIN SODIUM/SULBACTAM SODIUM [Concomitant]
     Dosage: DOSE: UNK
     Dates: start: 20010324

REACTIONS (1)
  - STEVENS-JOHNSON SYNDROME [None]
